FAERS Safety Report 5579841-3 (Version None)
Quarter: 2008Q1

REPORT INFORMATION
  Report Type: 
  Country: None (occurrence: None)
  Receive Date: 20080102
  Receipt Date: 20071221
  Transmission Date: 20080703
  Serious: Yes (Other)
  Sender: FDA-Public Use
  Company Number: US-PFIZER INC-2007107657

PATIENT
  Sex: Male
  Weight: 9.8 kg

DRUGS (1)
  1. ZITHROMAX [Suspect]
     Indication: URINARY TRACT INFECTION
     Dates: start: 20071216, end: 20071219

REACTIONS (3)
  - DYSPNOEA [None]
  - FACE OEDEMA [None]
  - URTICARIA [None]
